FAERS Safety Report 11397868 (Version 1)
Quarter: 2015Q3

REPORT INFORMATION
  Report Type: Report from Study
  Country: US (occurrence: US)
  Receive Date: 20150819
  Receipt Date: 20150819
  Transmission Date: 20151125
  Serious: Yes (Hospitalization)
  Sender: FDA-Public Use
  Company Number: US-GILEAD-2015-0167723

PATIENT
  Age: 29 Year
  Sex: Female

DRUGS (1)
  1. AZTREONAM LYSINE [Suspect]
     Active Substance: AZTREONAM LYSINE
     Indication: CYSTIC FIBROSIS
     Dosage: 75 MG, UNK
     Route: 055
     Dates: start: 20150403, end: 20150527

REACTIONS (7)
  - Nausea [Unknown]
  - Pyrexia [Unknown]
  - Abdominal discomfort [Unknown]
  - Off label use [Recovered/Resolved]
  - Dizziness [Unknown]
  - Productive cough [Unknown]
  - Forced expiratory volume decreased [Unknown]

NARRATIVE: CASE EVENT DATE: 20150403
